FAERS Safety Report 6516247-4 (Version None)
Quarter: 2009Q4

REPORT INFORMATION
  Report Type: 
  Country: None (occurrence: None)
  Receive Date: 20091214
  Receipt Date: 20081023
  Transmission Date: 20100525
  Serious: Yes (Other)
  Sender: FDA-Public Use
  Company Number: US-JNJFOC-20081006137

PATIENT
  Age: 35 Year
  Sex: Female
  Weight: 90.7194 kg

DRUGS (1)
  1. PEPCID COMPLETE [Suspect]
     Indication: DYSPEPSIA
     Dosage: 25 DOSE (S), IN 1 DAY, ORAL
     Route: 048
     Dates: start: 20080801

REACTIONS (2)
  - INTENTIONAL OVERDOSE [None]
  - THERAPEUTIC RESPONSE DECREASED [None]
